FAERS Safety Report 7933753-6 (Version None)
Quarter: 2011Q4

REPORT INFORMATION
  Report Type: 
  Country: None (occurrence: None)
  Receive Date: 20111122
  Receipt Date: 20111118
  Transmission Date: 20120403
  Serious: Yes (Congenital Anomaly, Other)
  Sender: FDA-Public Use
  Company Number: US-PFIZER INC-2010109646

PATIENT
  Sex: Female
  Weight: 3.18 kg

DRUGS (1)
  1. ZOLOFT [Suspect]
     Dosage: UNK
     Route: 064

REACTIONS (4)
  - CARDIAC MURMUR [None]
  - CONGENITAL NAEVUS [None]
  - FOETAL EXPOSURE DURING PREGNANCY [None]
  - PULMONARY VALVE STENOSIS [None]
